FAERS Safety Report 5041745-2 (Version None)
Quarter: 2006Q2

REPORT INFORMATION
  Report Type: 
  Country: None (occurrence: None)
  Receive Date: 20060630
  Receipt Date: 20060619
  Transmission Date: 20061013
  Serious: Yes (Other)
  Sender: FDA-Public Use
  Company Number: 2005165652

PATIENT
  Age: 41 Year
  Sex: Female
  Weight: 70.3075 kg

DRUGS (10)
  1. DOSTINEX [Suspect]
     Indication: PITUITARY TUMOUR BENIGN
     Dates: start: 19900701
  2. PROVIGIL [Suspect]
     Indication: PITUITARY TUMOUR BENIGN
     Dosage: 200 MG (200 MG, 1 IN 1 D); ORAL
     Route: 048
     Dates: start: 20051001, end: 20051005
  3. PERCOCET [Concomitant]
  4. ACTONEL [Concomitant]
  5. CLIMARA [Concomitant]
  6. ZOLOFT [Concomitant]
  7. ZOCOR [Concomitant]
  8. AMBIEN [Concomitant]
  9. FLONASE [Concomitant]
  10. SINGULAIR [Concomitant]

REACTIONS (9)
  - DRUG INTERACTION [None]
  - HYPERTHERMIA [None]
  - HYPOTENSION [None]
  - LEUKOPENIA [None]
  - PETECHIAE [None]
  - SEPSIS [None]
  - SEROSITIS [None]
  - SYSTEMIC LUPUS ERYTHEMATOSUS [None]
  - THROMBOCYTOPENIA [None]
